FAERS Safety Report 7806554-7 (Version None)
Quarter: 2011Q4

REPORT INFORMATION
  Report Type: 
  Country: None (occurrence: None)
  Receive Date: 20111011
  Receipt Date: 20110926
  Transmission Date: 20120403
  Serious: Yes (Hospitalization)
  Sender: FDA-Public Use
  Company Number: JP-TYCO HEALTHCARE/MALLINCKRODT-T201101172

PATIENT
  Age: 76 Year
  Sex: Female
  Weight: 41 kg

DRUGS (8)
  1. OPTIRAY 160 [Suspect]
     Indication: COMPUTERISED TOMOGRAM
     Dosage: 100 ML, SINGLE
     Dates: start: 20110516, end: 20110516
  2. TEPRENONE [Concomitant]
     Dosage: UNK
     Route: 048
  3. PREDNISOLONE [Concomitant]
     Indication: LIVER FUNCTION TEST ABNORMAL
     Dosage: UNK
     Route: 048
     Dates: start: 20110426
  4. GLUTATHIONE [Concomitant]
     Indication: LIVER DISORDER
     Dosage: UNK
     Route: 048
  5. FAMOTIDINE [Concomitant]
     Indication: PROPHYLAXIS AGAINST GASTROINTESTINAL ULCER
     Dosage: 10 MG, QD
     Route: 048
     Dates: start: 20110507, end: 20110509
  6. AMINOACETIC ACID [Concomitant]
     Indication: LIVER DISORDER
     Dosage: UNK
     Route: 042
  7. URSODIOL [Concomitant]
     Indication: LIVER DISORDER
     Route: 048
  8. MAGNESIUM OXIDE [Concomitant]
     Dosage: UNK
     Route: 048

REACTIONS (1)
  - RASH [None]
